FAERS Safety Report 4319154-0 (Version None)
Quarter: 2004Q1

REPORT INFORMATION
  Report Type: 
  Country: None (occurrence: None)
  Receive Date: 20040318
  Receipt Date: 20010905
  Transmission Date: 20041129
  Serious: Yes (Congenital Anomaly)
  Sender: FDA-Public Use
  Company Number: 64886-2001-022

PATIENT

DRUGS (2)
  1. METHOTREXATE [Suspect]
     Indication: ABORTION INDUCED
  2. CYTOTEC SUPPOSITORY [Concomitant]
     Route: 054

REACTIONS (1)
  - CONGENITAL ANOMALY [None]
